FAERS Safety Report 4732214-5 (Version None)
Quarter: 2005Q3

REPORT INFORMATION
  Report Type: 
  Country: None (occurrence: None)
  Receive Date: 20050802
  Receipt Date: 20050412
  Transmission Date: 20060218
  Serious: Yes (Life-Threatening, Hospitalization)
  Sender: FDA-Public Use
  Company Number: DE-MERCK-0504DEU00091

PATIENT
  Age: 51 Year
  Sex: Male
  Weight: 78 kg

DRUGS (11)
  1. LISINOPRIL [Concomitant]
     Indication: HYPERTENSION
     Route: 048
  2. DOXEPIN HYDROCHLORIDE [Concomitant]
     Indication: PAIN PROPHYLAXIS
     Route: 048
     Dates: start: 20020401, end: 20020401
  3. HYDROCHLOROTHIAZIDE AND TRIAMTERENE [Concomitant]
     Indication: HYPERTENSION
     Route: 048
  4. VIOXX [Suspect]
     Indication: BACK PAIN
     Route: 048
     Dates: start: 20020401, end: 20030401
  5. VIOXX [Suspect]
     Route: 048
     Dates: start: 20030401, end: 20040101
  6. VIOXX [Suspect]
     Indication: CERVICAL ROOT PAIN
     Route: 048
     Dates: start: 20020401, end: 20030401
  7. VIOXX [Suspect]
     Route: 048
     Dates: start: 20030401, end: 20040101
  8. CLOMIPRAMINE HYDROCHLORIDE [Concomitant]
     Indication: PAIN PROPHYLAXIS
     Route: 048
     Dates: start: 20020401
  9. TRAMADOL HYDROCHLORIDE [Concomitant]
     Indication: CERVICAL ROOT PAIN
     Route: 048
     Dates: start: 20020401
  10. POLYETHYLENE GLYCOL 3350 AND POTASSIUM CHLORIDE AND SODIUM BICARBONATE [Concomitant]
     Route: 048
  11. NEBIVOLOL HYDROCHLORIDE [Concomitant]
     Route: 048

REACTIONS (5)
  - ANGINA PECTORIS [None]
  - ARTERIOSPASM CORONARY [None]
  - CERVICAL SPINAL STENOSIS [None]
  - FATIGUE [None]
  - HYPERTENSIVE HEART DISEASE [None]
